FAERS Safety Report 8326319-X (Version None)
Quarter: 2012Q2

REPORT INFORMATION
  Report Type: 
  Country: None (occurrence: None)
  Receive Date: 20120501
  Receipt Date: 20120426
  Transmission Date: 20120825
  Serious: Yes (Death, Hospitalization, Other)
  Sender: FDA-Public Use
  Company Number: US-ELI_LILLY_AND_COMPANY-US201204006126

PATIENT
  Age: 65 Year
  Sex: Male

DRUGS (2)
  1. EFFIENT [Suspect]
     Indication: ACUTE MYOCARDIAL INFARCTION
     Dosage: 60 MG, SINGLE LOADING DOSE
  2. TENECTEPLASE [Concomitant]

REACTIONS (4)
  - HEMIPLEGIA [None]
  - MUSCULAR WEAKNESS [None]
  - DEATH [None]
  - HAEMORRHAGE INTRACRANIAL [None]
